FAERS Safety Report 6680176-6 (Version None)
Quarter: 2010Q2

REPORT INFORMATION
  Report Type: 
  Country: None (occurrence: None)
  Receive Date: 20100413
  Receipt Date: 20100401
  Transmission Date: 20101027
  Serious: Yes (Hospitalization)
  Sender: FDA-Public Use
  Company Number: DE-ELI_LILLY_AND_COMPANY-DE201004001429

PATIENT
  Sex: Female
  Weight: 137 kg

DRUGS (35)
  1. CYMBALTA [Suspect]
     Dosage: 30 MG, UNKNOWN
     Route: 048
     Dates: start: 20090821
  2. CYMBALTA [Suspect]
     Dosage: 30 MG, UNKNOWN
     Route: 048
     Dates: start: 20091029
  3. BERLTHYROX [Concomitant]
     Dosage: 150 D/F, UNKNOWN
     Route: 065
     Dates: start: 20040425
  4. CANDESARTAN CILEXETIL [Concomitant]
     Dosage: 8 MG, UNKNOWN
     Route: 065
     Dates: start: 20040525
  5. CANDESARTAN CILEXETIL [Concomitant]
     Dosage: 16 MG, UNKNOWN
     Route: 065
     Dates: start: 20051121
  6. ESPA-LIPON [Concomitant]
     Dosage: 600 MG, UNKNOWN
     Route: 065
     Dates: start: 20040525
  7. RANITIC [Concomitant]
     Dosage: 150 D/F, UNKNOWN
     Route: 065
     Dates: start: 20040525
  8. RANITIC [Concomitant]
     Dosage: 150 D/F, UNKNOWN
     Route: 065
     Dates: start: 20041129
  9. RANITIC [Concomitant]
     Dosage: 150 D/F, UNKNOWN
     Route: 065
     Dates: start: 20050311
  10. CARBA [Concomitant]
     Dosage: 200 D/F, UNKNOWN
     Route: 065
     Dates: start: 20040525
  11. CARBA [Concomitant]
     Dosage: 200 D/F, UNKNOWN
     Route: 065
     Dates: start: 20041129
  12. CARBA [Concomitant]
     Dosage: 200 D/F, UNKNOWN
     Route: 065
     Dates: start: 20050311
  13. CARBA [Concomitant]
     Dosage: 200 D/F, UNKNOWN
     Route: 065
     Dates: start: 20090626
  14. CARBA [Concomitant]
     Dosage: 200 D/F, UNKNOWN
     Route: 065
     Dates: start: 20090723
  15. CARBA [Concomitant]
     Dosage: 200 D/F, UNKNOWN
     Route: 065
     Dates: start: 20090821
  16. CARBA [Concomitant]
     Dosage: 200 D/F, UNKNOWN
     Route: 065
     Dates: start: 20091029
  17. IBUFLAM                            /00109201/ [Concomitant]
     Dosage: 40 MG, UNKNOWN
     Route: 065
     Dates: start: 20040525
  18. IBUFLAM                            /00109201/ [Concomitant]
     Dosage: 400 MG, UNKNOWN
     Route: 065
     Dates: start: 20041129
  19. IBUFLAM                            /00109201/ [Concomitant]
     Dosage: 400 MG, UNKNOWN
     Route: 065
     Dates: start: 20050311
  20. ACTRAPID                           /00030501/ [Concomitant]
     Dosage: UNK, UNKNOWN
     Route: 065
     Dates: start: 20040525
  21. ACTRAPID                           /00030501/ [Concomitant]
     Dosage: UNK, UNKNOWN
     Route: 065
     Dates: start: 20041129
  22. ACTRAPID                           /00030501/ [Concomitant]
     Dosage: UNK, UNKNOWN
     Route: 065
     Dates: start: 20050311
  23. ACTRAPID                           /00030501/ [Concomitant]
     Dosage: UNK, UNKNOWN
     Route: 065
     Dates: start: 20051121
  24. ACTRAPID                           /00030501/ [Concomitant]
     Dosage: UNK, UNKNOWN
     Route: 065
     Dates: start: 20051214
  25. ACTRAPID                           /00030501/ [Concomitant]
     Dosage: UNK, UNKNOWN
     Route: 065
     Dates: start: 20060712
  26. ACTRAPID                           /00030501/ [Concomitant]
     Dosage: UNK, UNKNOWN
     Route: 065
     Dates: start: 20060816
  27. ACTRAPID                           /00030501/ [Concomitant]
     Dosage: UNK, UNKNOWN
     Route: 065
     Dates: start: 20080208
  28. MEDIABET [Concomitant]
     Dosage: 850 MG, UNKNOWN
     Route: 065
     Dates: start: 20050311
  29. ENABETA [Concomitant]
     Dosage: 10 D/F, UNKNOWN
     Route: 065
     Dates: start: 20070305
  30. ENABETA [Concomitant]
     Dosage: 10 D/F, UNKNOWN
     Route: 065
     Dates: start: 20090723
  31. MET [Concomitant]
     Dosage: 1000 MG, UNKNOWN
     Route: 065
     Dates: start: 20071126
  32. MET [Concomitant]
     Dosage: 1000 MG, UNKNOWN
     Route: 065
     Dates: start: 20090723
  33. BERLININSULIN H BASAL [Concomitant]
     Dosage: UNK, UNKNOWN
     Route: 065
     Dates: start: 20071207
  34. BERLININSULIN H BASAL [Concomitant]
     Dosage: UNK, UNKNOWN
     Route: 065
     Dates: start: 20090723
  35. NOVAMINSULFON ^LICHTENSTEIN^ [Concomitant]
     Dosage: UNK, UNKNOWN
     Route: 065
     Dates: start: 20090723

REACTIONS (1)
  - FACET JOINT SYNDROME [None]
